FAERS Safety Report 5939133-7 (Version None)
Quarter: 2008Q4

REPORT INFORMATION
  Report Type: 
  Country: None (occurrence: None)
  Receive Date: 20081103
  Receipt Date: 20081027
  Transmission Date: 20090506
  Serious: Yes (Other)
  Sender: FDA-Public Use
  Company Number: IT-BRISTOL-MYERS SQUIBB COMPANY-14390314

PATIENT
  Age: 47 Year
  Sex: Male

DRUGS (7)
  1. STAVUDINE [Suspect]
     Indication: HIV INFECTION
     Dosage: STOPPED ON NOV 2003 RESTARTED: JUNE 2004
     Dates: start: 19980101
  2. LAMIVUDINE [Suspect]
     Indication: HIV INFECTION
     Dosage: STOPPED ON NOV 2003 RESTARTED: JUNE 2004
     Dates: start: 19980101
  3. INDINIVIR SULFATE [Suspect]
     Indication: HIV INFECTION
     Dates: start: 19980101
  4. ZIDOVUDINE [Suspect]
     Indication: HIV INFECTION
     Dates: start: 20030701
  5. NEVIRAPINE [Suspect]
     Indication: HIV INFECTION
     Dates: start: 20030701
  6. PEGINTERFERON ALFA-2A [Suspect]
     Indication: HEPATITIS C
     Dosage: IN SEPTEMBER 2004, ANTI-HCV THERAPY WAS INTERRUPTED
     Dates: start: 20040301, end: 20040801
  7. RIBAVIRIN [Suspect]
     Indication: HEPATITIS C
     Dosage: TWO TABLETS IN THE MORNING AND THREE IN THE EVENING. SEPTEMBER 2004: INTERRUPTED
     Dates: start: 20040301, end: 20040801

REACTIONS (1)
  - LICHENOID KERATOSIS [None]
